FAERS Safety Report 4799987-7 (Version None)
Quarter: 2005Q4

REPORT INFORMATION
  Report Type: 
  Country: None (occurrence: None)
  Receive Date: 20051013
  Receipt Date: 20051013
  Transmission Date: 20060501
  Serious: Yes (Hospitalization)
  Sender: FDA-Public Use
  Company Number: None

PATIENT
  Sex: Male
  Weight: 93 kg

DRUGS (2)
  1. CELEBREX [Suspect]
  2. ASPIRIN [Suspect]
     Dosage: 81 MG QD PO
     Route: 048

REACTIONS (1)
  - HAEMORRHAGIC STROKE [None]
